FAERS Safety Report 20449412 (Version 5)
Quarter: 2022Q3

REPORT INFORMATION
  Report Type: Report from Study
  Country: US (occurrence: US)
  Receive Date: 20220209
  Receipt Date: 20220827
  Transmission Date: 20221026
  Serious: Yes (Other)
  Sender: FDA-Public Use
  Company Number: US-ABBVIE-22K-163-4270533-00

PATIENT
  Sex: Male

DRUGS (3)
  1. IMBRUVICA [Suspect]
     Active Substance: IBRUTINIB
     Indication: Chronic lymphocytic leukaemia
     Route: 048
  2. IMBRUVICA [Suspect]
     Active Substance: IBRUTINIB
     Route: 048
  3. MODERNA COVID-19 VACCINE [Concomitant]
     Active Substance: ELASOMERAN
     Indication: COVID-19 immunisation
     Route: 030

REACTIONS (8)
  - Medical device implantation [Recovering/Resolving]
  - Haematochezia [Unknown]
  - Balance disorder [Not Recovered/Not Resolved]
  - Wound haemorrhage [Unknown]
  - Atrial fibrillation [Not Recovered/Not Resolved]
  - Contusion [Unknown]
  - Neuropathy peripheral [Unknown]
  - Onychoclasis [Recovering/Resolving]

NARRATIVE: CASE EVENT DATE: 20210101
